FAERS Safety Report 14561438 (Version 5)
Quarter: 2019Q3

REPORT INFORMATION
  Report Type: Spontaneous
  Country: US (occurrence: US)
  Receive Date: 20180222
  Receipt Date: 20190828
  Transmission Date: 20191004
  Serious: Yes (Hospitalization, Other)
  Sender: FDA-Public Use
  Company Number: US-ASTRAZENECA-2018SE21002

PATIENT
  Age: 66 Year
  Sex: Female
  Weight: 129.3 kg

DRUGS (31)
  1. LORAZEPAM/ ATIVAN [Concomitant]
     Route: 065
  2. CARAFATE [Concomitant]
     Active Substance: SUCRALFATE
     Dosage: 1 TABLET(S) BEFORE MEALS AND AT BEDTIME
     Route: 048
     Dates: start: 20120515
  3. PERCOCET [Concomitant]
     Active Substance: ACETAMINOPHEN\OXYCODONE HYDROCHLORIDE
     Dosage: 7.5-325 MG 1 TABLET I TAB EVERY SIX HOURS
     Route: 048
     Dates: start: 20120821
  4. FUROSEMIDE. [Concomitant]
     Active Substance: FUROSEMIDE
     Dosage: 40 MG
     Dates: start: 20141208
  5. SIMVASTATIN/ ZOCOR [Concomitant]
     Route: 065
  6. FEXOFENADINE [Concomitant]
     Active Substance: FEXOFENADINE HYDROCHLORIDE
     Route: 048
     Dates: start: 20110511
  7. AZITHROMYCIN ANHYDROUS. [Concomitant]
     Active Substance: AZITHROMYCIN ANHYDROUS
  8. MIRALAX [Concomitant]
     Active Substance: POLYETHYLENE GLYCOL 3350
     Route: 065
  9. NEXIUM [Suspect]
     Active Substance: ESOMEPRAZOLE MAGNESIUM
     Indication: DYSPEPSIA
     Route: 048
     Dates: start: 2011, end: 2015
  10. TOPROL XL [Concomitant]
     Active Substance: METOPROLOL SUCCINATE
     Dosage: 1 TABLET ER 24HR DAILY
     Route: 048
     Dates: start: 20130605
  11. KLOR-CON [Concomitant]
     Active Substance: POTASSIUM CHLORIDE
     Route: 048
     Dates: start: 20130116
  12. FLUTICASONE. [Concomitant]
     Active Substance: FLUTICASONE
     Dosage: 50 MCG
     Dates: start: 20141205
  13. AMLODIPINE BASYLATE [Concomitant]
     Dosage: 5 MG
     Dates: start: 20160301
  14. MELOXICAM. [Concomitant]
     Active Substance: MELOXICAM
  15. HYDROXYZINE [Concomitant]
     Active Substance: HYDROXYZINE HYDROCHLORIDE
     Route: 065
  16. NEXIUM [Suspect]
     Active Substance: ESOMEPRAZOLE MAGNESIUM
     Indication: DYSPEPSIA
     Route: 048
     Dates: start: 2011, end: 2013
  17. HYDROCHLOROTHIAZIDE AND LISINOPRIL [Concomitant]
     Active Substance: HYDROCHLOROTHIAZIDE\LISINOPRIL
     Dosage: 20-25 MG
     Route: 048
     Dates: start: 20110511
  18. LOMOTIL [Concomitant]
     Active Substance: ATROPINE SULFATE\DIPHENOXYLATE HYDROCHLORIDE
     Dosage: 2.5-0.025 1 EVERY FOUR-SIX HOURS
     Route: 048
     Dates: start: 20120821
  19. CLONIDINE. [Concomitant]
     Active Substance: CLONIDINE
     Dosage: 0.1 MG
     Dates: start: 20141205
  20. ROCALTROL [Concomitant]
     Active Substance: CALCITRIOL
     Route: 065
  21. NEXIUM [Suspect]
     Active Substance: ESOMEPRAZOLE MAGNESIUM
     Indication: DYSPEPSIA
     Route: 048
     Dates: start: 20110816
  22. MINOXIDIL. [Concomitant]
     Active Substance: MINOXIDIL
     Dosage: ONE HALF TABLET IN THE AM
     Route: 048
     Dates: start: 20130424
  23. PAROXETINE. [Concomitant]
     Active Substance: PAROXETINE
     Dates: start: 20110511
  24. MULTI VITAMIN [Concomitant]
     Active Substance: VITAMINS
     Indication: GENERAL PHYSICAL HEALTH DETERIORATION
  25. PROXETINE [Concomitant]
  26. PENICILLIN [Concomitant]
     Active Substance: PENICILLIN
  27. COUMADIN [Concomitant]
     Active Substance: WARFARIN SODIUM
     Route: 065
  28. TRAMADOL. [Concomitant]
     Active Substance: TRAMADOL
     Route: 065
  29. GABAPENTIN. [Concomitant]
     Active Substance: GABAPENTIN
     Route: 065
  30. CARVEDILOL. [Concomitant]
     Active Substance: CARVEDILOL
     Dosage: 25 MG
     Dates: start: 20160603
  31. HYDRALAZINE [Concomitant]
     Active Substance: HYDRALAZINE HYDROCHLORIDE

REACTIONS (6)
  - Nephropathy [Unknown]
  - End stage renal disease [Unknown]
  - Chronic kidney disease [Not Recovered/Not Resolved]
  - Renal failure [Unknown]
  - Asthma [Not Recovered/Not Resolved]
  - Anxiety [Unknown]

NARRATIVE: CASE EVENT DATE: 2015
